FAERS Safety Report 25764779 (Version 1)
Quarter: 2025Q3

REPORT INFORMATION
  Report Type: Spontaneous
  Country: IL (occurrence: IL)
  Receive Date: 20250905
  Receipt Date: 20250905
  Transmission Date: 20251020
  Serious: Yes (Other)
  Sender: DECIPHERA PHARMACEUTICALS
  Company Number: IL-DECIPHERA PHARMACEUTICALS LLC-2025IL001083

PATIENT
  Sex: Male

DRUGS (1)
  1. QINLOCK [Suspect]
     Active Substance: RIPRETINIB
     Indication: Dermatofibrosarcoma protuberans
     Dates: start: 202503, end: 202507

REACTIONS (2)
  - Malignant neoplasm progression [Not Recovered/Not Resolved]
  - Off label use [Unknown]

NARRATIVE: CASE EVENT DATE: 20250301
